FAERS Safety Report 8756911 (Version 1)
Quarter: 2012Q4

REPORT INFORMATION
  Report Type: 
  Country: US (occurrence: US)
  Receive Date: 20120828
  Receipt Date: 20120828
  Transmission Date: 20130627
  Serious: Yes (Hospitalization)
  Sender: FDA-Public Use
  Company Number: US-PFIZER INC-2012202475

PATIENT
  Age: 75 Year
  Sex: Male
  Weight: 80.7 kg

DRUGS (14)
  1. AXITINIB [Suspect]
     Indication: METASTATIC MALIGNANT MELANOMA
     Dosage: 3 mg, 2x/day
     Route: 048
     Dates: start: 20110222, end: 20120815
  2. AMLODIPINE [Concomitant]
  3. ATIVAN [Concomitant]
     Dosage: UNK
     Dates: start: 20120515
  4. BETAMETHASONE [Concomitant]
  5. CLOTRIMAZOLE [Concomitant]
  6. FINASTERIDE [Concomitant]
  7. FISH OIL [Concomitant]
  8. FLOMOX [Concomitant]
  9. LEVOTHROID [Concomitant]
     Dosage: UNK
     Dates: start: 20120717
  10. LISINOPRIL [Concomitant]
  11. OSTEO BI-FLEX [Concomitant]
  12. PANTOPRAZOLE [Concomitant]
     Dosage: UNK
     Dates: start: 20120814
  13. TRAMADOL [Concomitant]
     Dosage: UNK
     Dates: start: 20120802
  14. VITAMIN D [Concomitant]

REACTIONS (1)
  - Pancreatitis [Unknown]
